FAERS Safety Report 10447420 (Version 2)
Quarter: 2014Q3

REPORT INFORMATION
  Report Type: Spontaneous
  Country: IT (occurrence: IT)
  Receive Date: 20140911
  Receipt Date: 20140929
  Transmission Date: 20150326
  Serious: Yes (Death, Hospitalization)
  Sender: FDA-Public Use
  Company Number: IT-TEVA-507237ISR

PATIENT
  Age: 86 Year
  Sex: Female
  Weight: 65 kg

DRUGS (6)
  1. CARBOLITHIUM 150 MG [Suspect]
     Active Substance: LITHIUM CARBONATE
     Indication: AFFECTIVE DISORDER
     Dosage: 2 DOSAGE FORMS DAILY;
     Route: 048
     Dates: start: 20130601, end: 20140217
  2. RAMIPRIL. [Concomitant]
     Active Substance: RAMIPRIL
  3. LANSOPRAZOLO [Concomitant]
     Active Substance: LANSOPRAZOLE
  4. TICLOPIDINA [Concomitant]
     Active Substance: TICLOPIDINE
  5. ALPRAOZOLAM [Concomitant]
  6. SALMETEROLO [Concomitant]

REACTIONS (5)
  - Sopor [Unknown]
  - Death [Fatal]
  - Dyspnoea [Fatal]
  - Cardiac failure [Unknown]
  - Respiratory failure [Fatal]

NARRATIVE: CASE EVENT DATE: 20140216
